FAERS Safety Report 9165908 (Version 2)
Quarter: 2013Q2

REPORT INFORMATION
  Report Type: Spontaneous
  Country: BR (occurrence: BR)
  Receive Date: 20130315
  Receipt Date: 20130524
  Transmission Date: 20140414
  Serious: Yes (Other)
  Sender: FDA-Public Use
  Company Number: BR-ASTRAZENECA-2013SE16325

PATIENT
  Age: 767 Month
  Sex: Female
  Weight: 70 kg

DRUGS (7)
  1. CRESTOR [Suspect]
     Indication: BLOOD CHOLESTEROL INCREASED
     Route: 048
     Dates: start: 2010, end: 201212
  2. CRESTOR [Suspect]
     Indication: THROMBOSIS
     Route: 048
     Dates: start: 2010, end: 201212
  3. CRESTOR [Suspect]
     Indication: BLOOD CHOLESTEROL INCREASED
     Route: 048
     Dates: start: 201212, end: 201304
  4. CRESTOR [Suspect]
     Indication: THROMBOSIS
     Route: 048
     Dates: start: 201212, end: 201304
  5. CRESTOR [Suspect]
     Indication: BLOOD CHOLESTEROL INCREASED
     Route: 048
     Dates: start: 201304
  6. CRESTOR [Suspect]
     Indication: THROMBOSIS
     Route: 048
     Dates: start: 201304
  7. PLAVIX [Concomitant]
     Route: 048

REACTIONS (3)
  - Ischaemia [Unknown]
  - Ischaemic stroke [Unknown]
  - Stress [Unknown]
